FAERS Safety Report 9587951 (Version 1)
Quarter: 2013Q4

REPORT INFORMATION
  Report Type: Report from Study
  Country: TW (occurrence: TW)
  Receive Date: 20131003
  Receipt Date: 20131003
  Transmission Date: 20140711
  Serious: No
  Sender: FDA-Public Use
  Company Number: PHHY2012TW120501

PATIENT
  Age: 43 Year
  Sex: Female

DRUGS (10)
  1. AMN107 [Suspect]
  2. ACETAMINOPHEN [Concomitant]
     Indication: HEADACHE
     Dates: start: 20111226, end: 20120423
  3. BISACODYL [Concomitant]
     Indication: CONSTIPATION
     Dates: start: 20120305
  4. CEFUROXIME [Concomitant]
     Indication: PROPHYLAXIS URINARY TRACT INFECTION
     Dates: start: 20110822, end: 20110829
  5. COUGH MIXTURE A [Concomitant]
     Indication: COUGH
     Dates: start: 20111226, end: 20111230
  6. FUROSEMIDE [Concomitant]
     Indication: OEDEMA PERIPHERAL
     Dates: start: 20120305
  7. LEVOFLOXACIN [Concomitant]
     Indication: URINARY TRACT INFECTION
     Dates: start: 20111017, end: 20111024
  8. LORATADINE [Concomitant]
     Indication: RESPIRATORY TRACT INFECTION
     Dates: start: 20111226, end: 20111230
  9. PSEUDOEPHEDRINE [Concomitant]
     Indication: RESPIRATORY TRACT INFECTION
     Dates: start: 20111226, end: 20111230
  10. SENNOSIDE A+B CALCIUM [Concomitant]
     Indication: CONSTIPATION
     Dates: start: 20120213, end: 20120305

REACTIONS (1)
  - Insomnia [Unknown]
